FAERS Safety Report 6786651-8 (Version None)
Quarter: 2010Q2

REPORT INFORMATION
  Report Type: 
  Country: None (occurrence: None)
  Receive Date: 20100623
  Receipt Date: 20100528
  Transmission Date: 20101027
  Serious: Yes (Other)
  Sender: FDA-Public Use
  Company Number: US-BRISTOL-MYERS SQUIBB COMPANY-15153117

PATIENT

DRUGS (2)
  1. EFAVIRENZ [Suspect]
     Indication: HIV INFECTION
     Route: 048
     Dates: start: 20080701
  2. RALTEGRAVIR [Suspect]
     Indication: HIV INFECTION
     Dosage: TABLET
     Route: 048
     Dates: start: 20080701, end: 20100401

REACTIONS (2)
  - HYPOMAGNESAEMIA [None]
  - NEPHROTIC SYNDROME [None]
